FAERS Safety Report 13338913 (Version 9)
Quarter: 2017Q3

REPORT INFORMATION
  Report Type: Spontaneous
  Country: US (occurrence: US)
  Receive Date: 20170315
  Receipt Date: 20170807
  Transmission Date: 20171127
  Serious: Yes (Congenital Anomaly, Other)
  Sender: FDA-Public Use
  Company Number: PHEH2017US007474

PATIENT
  Sex: Male

DRUGS (1)
  1. ZOFRAN [Suspect]
     Active Substance: ONDANSETRON HYDROCHLORIDE
     Indication: FOETAL EXPOSURE DURING PREGNANCY
     Dosage: MOTHER DOSE: 08 MG, Q8H
     Route: 064

REACTIONS (59)
  - Right aortic arch [Unknown]
  - Right ventricular dilatation [Unknown]
  - Foetal exposure during pregnancy [Unknown]
  - Influenza like illness [Unknown]
  - Conjunctivitis [Unknown]
  - Dyspnoea [Unknown]
  - Respiratory distress [Unknown]
  - Tonsillitis streptococcal [Unknown]
  - Cardiac murmur [Unknown]
  - Abdominal pain [Unknown]
  - Decreased appetite [Unknown]
  - Nasopharyngitis [Unknown]
  - Wheezing [Unknown]
  - Pneumothorax [Unknown]
  - Tricuspid valve incompetence [Unknown]
  - Bronchiolitis [Unknown]
  - Right ventricular hypertrophy [Unknown]
  - Mitral valve incompetence [Unknown]
  - Right atrial enlargement [Unknown]
  - Bronchitis [Unknown]
  - Bronchial hyperreactivity [Unknown]
  - Dysphagia [Unknown]
  - Eczema [Unknown]
  - Urinary tract infection [Unknown]
  - Decreased activity [Unknown]
  - Decubitus ulcer [Unknown]
  - Pyrexia [Unknown]
  - Pulmonary artery dilatation [Unknown]
  - Bundle branch block [Unknown]
  - Dermatitis atopic [Unknown]
  - Atelectasis [Unknown]
  - Lymphoid tissue hyperplasia [Unknown]
  - Syncope [Unknown]
  - Chills [Unknown]
  - Headache [Unknown]
  - Pneumonia [Unknown]
  - Right atrial dilatation [Unknown]
  - Hypoxia [Unknown]
  - Seizure [Unknown]
  - Lung hypoinflation [Unknown]
  - Pharyngitis [Unknown]
  - Atrial septal defect [Unknown]
  - Left-to-right cardiac shunt [Unknown]
  - Pulmonary valve incompetence [Unknown]
  - Right ventricular enlargement [Unknown]
  - Pleural effusion [Unknown]
  - Pyogenic granuloma [Unknown]
  - Cardiomegaly [Unknown]
  - Cough [Unknown]
  - Oropharyngeal pain [Unknown]
  - Dysphonia [Unknown]
  - Tonsillar disorder [Unknown]
  - Pharyngitis streptococcal [Unknown]
  - Respiratory syncytial virus bronchitis [Unknown]
  - Anaemia [Unknown]
  - Nasal congestion [Unknown]
  - Skin papilloma [Unknown]
  - Rhinitis [Unknown]
  - Fatigue [Unknown]
